FAERS Safety Report 18020369 (Version 1)
Quarter: 2020Q3

REPORT INFORMATION
  Report Type: Spontaneous
  Country: FR (occurrence: FR)
  Receive Date: 20200714
  Receipt Date: 20200714
  Transmission Date: 20201103
  Serious: Yes (Life-Threatening)
  Sender: FDA-Public Use
  Company Number: FR-PFIZER INC-2020265494

PATIENT
  Age: 67 Year
  Sex: Female
  Weight: 104 kg

DRUGS (6)
  1. TAZOCILLINE [Suspect]
     Active Substance: PIPERACILLIN SODIUM\TAZOBACTAM SODIUM
     Indication: BRONCHOPULMONARY ASPERGILLOSIS
     Dosage: 4 DF, DAILY
     Route: 042
     Dates: start: 20200426, end: 20200429
  2. HEPARINE [HEPARIN] [Concomitant]
     Active Substance: HEPARIN SODIUM
     Dosage: 1500 IU, HOURLY
     Route: 042
     Dates: start: 20200410
  3. VORICONAZOLE. [Suspect]
     Active Substance: VORICONAZOLE
     Indication: BRONCHOPULMONARY ASPERGILLOSIS
     Dosage: UNK
     Route: 042
     Dates: start: 20200417, end: 20200429
  4. MIDAZOLAM. [Concomitant]
     Active Substance: MIDAZOLAM
     Dosage: 20 MG, HOURLY
     Route: 042
     Dates: start: 20200407
  5. VANCOMYCINE [VANCOMYCIN] [Suspect]
     Active Substance: VANCOMYCIN
     Indication: BRONCHOPULMONARY ASPERGILLOSIS
     Dosage: 3 G, DAILY
     Route: 042
     Dates: start: 20200426, end: 20200429
  6. SUFENTANIL [Concomitant]
     Active Substance: SUFENTANIL
     Dosage: 20 MG, HOURLY
     Route: 042
     Dates: start: 20200407

REACTIONS (5)
  - Cholestasis [Recovering/Resolving]
  - Hepatocellular injury [Recovering/Resolving]
  - Product use in unapproved indication [Unknown]
  - Jaundice cholestatic [Recovering/Resolving]
  - Off label use [Unknown]

NARRATIVE: CASE EVENT DATE: 20200426
